FAERS Safety Report 8469634-1 (Version None)
Quarter: 2012Q2

REPORT INFORMATION
  Report Type: 
  Country: None (occurrence: None)
  Receive Date: 20120626
  Receipt Date: 20120524
  Transmission Date: 20120825
  Serious: No
  Sender: FDA-Public Use
  Company Number: US-TEVA-340337USA

PATIENT
  Sex: Male

DRUGS (3)
  1. EZETIMIBE [Concomitant]
  2. QNASL [Suspect]
     Dosage: 160 MCG
     Dates: start: 20120522
  3. MELOXICAM [Concomitant]

REACTIONS (2)
  - NASAL DISCOMFORT [None]
  - NASAL DRYNESS [None]
